FAERS Safety Report 13549131 (Version 2)
Quarter: 2017Q2

REPORT INFORMATION
  Report Type: Spontaneous
  Country: US (occurrence: US)
  Receive Date: 20170516
  Receipt Date: 20170518
  Transmission Date: 20170830
  Serious: Yes (Other)
  Sender: FDA-Public Use
  Company Number: US-IPSEN BIOPHARMACEUTICALS, INC.-2017-03550

PATIENT
  Age: 59 Year
  Sex: Female
  Weight: 45 kg

DRUGS (21)
  1. ACTIGAL, URSO [Concomitant]
  2. 5FU [Concomitant]
     Active Substance: FLUOROURACIL
     Indication: CHEMOTHERAPY
  3. OCTREOTIDE LAR [Suspect]
     Active Substance: OCTREOTIDE
     Indication: PRODUCT USED FOR UNKNOWN INDICATION
     Dates: start: 201102, end: 2015
  4. PEPCID [Concomitant]
     Active Substance: FAMOTIDINE
  5. LAZANDA [Concomitant]
     Active Substance: FENTANYL CITRATE
     Indication: BREAKTHROUGH PAIN
     Dosage: MAX 8 SPRAYS PER DAY
  6. SYNTHROID [Concomitant]
     Active Substance: LEVOTHYROXINE SODIUM
  7. ZOFRAN [Concomitant]
     Active Substance: ONDANSETRON HYDROCHLORIDE
     Indication: NAUSEA
  8. STREPTOZOTOCIN [Concomitant]
     Active Substance: STREPTOZOCIN
     Indication: CHEMOTHERAPY
     Route: 042
  9. ATIVAN [Concomitant]
     Active Substance: LORAZEPAM
     Dosage: UP TO 12X DAILY AS NEEDED
  10. DILAUDID [Concomitant]
     Active Substance: HYDROMORPHONE HYDROCHLORIDE
  11. CREON [Concomitant]
     Active Substance: PANCRELIPASE AMYLASE\PANCRELIPASE LIPASE\PANCRELIPASE PROTEASE
     Dosage: 24 000 (LIPASE COUNT), 3 CAPSULES WITH EACH MEAL AND 2 CAPS WITH EACH SNACK
  12. SOMATULINE [Suspect]
     Active Substance: LANREOTIDE ACETATE
     Dosage: 60 MG
     Route: 058
  13. COMPAZINE [Concomitant]
     Active Substance: PROCHLORPERAZINE MALEATE
     Indication: NAUSEA
  14. REMERON [Concomitant]
     Active Substance: MIRTAZAPINE
  15. SOMATULINE [Suspect]
     Active Substance: LANREOTIDE ACETATE
     Indication: PANCREATIC NEUROENDOCRINE TUMOUR
     Dosage: 90 MG
     Route: 058
  16. SOMATULINE [Suspect]
     Active Substance: LANREOTIDE ACETATE
     Dosage: 120 MG
     Route: 058
  17. MS CONTIN [Concomitant]
     Active Substance: MORPHINE SULFATE
     Indication: BREAKTHROUGH PAIN
  18. MS CONTIN [Concomitant]
     Active Substance: MORPHINE SULFATE
  19. DILAUDID [Concomitant]
     Active Substance: HYDROMORPHONE HYDROCHLORIDE
     Indication: BREAKTHROUGH PAIN
  20. MEDICINAL CANNABIS [Concomitant]
  21. VAGIFEM [Concomitant]
     Active Substance: ESTRADIOL

REACTIONS (7)
  - Wrong technique in product usage process [Unknown]
  - Metastases to liver [Unknown]
  - Jaundice [Unknown]
  - Pleural effusion [Unknown]
  - Pancreatitis acute [Not Recovered/Not Resolved]
  - Metastases to bone [Unknown]
  - Injection site mass [Not Recovered/Not Resolved]

NARRATIVE: CASE EVENT DATE: 201509
